FAERS Safety Report 8095346-2 (Version None)
Quarter: 2011Q4

REPORT INFORMATION
  Report Type: 
  Country: None (occurrence: None)
  Receive Date: 20111222
  Receipt Date: 20111109
  Transmission Date: 20120403
  Serious: Yes (Hospitalization)
  Sender: FDA-Public Use
  Company Number: UTC-012269

PATIENT
  Age: 76 Year
  Sex: Female
  Weight: 69.1 kg

DRUGS (4)
  1. ASPIRIN [Concomitant]
  2. ADCIRCA [Concomitant]
  3. DIURETICS (DIURETICS) [Concomitant]
  4. TYVASO [Suspect]
     Indication: PULMONARY ARTERIAL HYPERTENSION
     Dosage: 96 MCG (24 MCG, 4 IN 1 D),INHALATION
     Route: 055
     Dates: start: 20111004

REACTIONS (2)
  - ASTHENIA [None]
  - ABASIA [None]
